FAERS Safety Report 19709664 (Version 1)
Quarter: 2021Q3

REPORT INFORMATION
  Report Type: Spontaneous
  Country: BE (occurrence: BE)
  Receive Date: 20210817
  Receipt Date: 20210817
  Transmission Date: 20211014
  Serious: Yes (Hospitalization, Other)
  Sender: FDA-Public Use
  Company Number: BE-MYLANLABS-2021M1052381

PATIENT
  Age: 12 Year
  Sex: Female

DRUGS (1)
  1. LAMOTRIGINE MYLAN [Suspect]
     Active Substance: LAMOTRIGINE
     Indication: GENERALISED TONIC-CLONIC SEIZURE
     Dosage: UNK

REACTIONS (23)
  - Thrombocytopenia [Recovered/Resolved]
  - Dermatitis [Recovered/Resolved]
  - Drug reaction with eosinophilia and systemic symptoms [Recovered/Resolved]
  - Leukopenia [Recovered/Resolved]
  - Hepatic enzyme increased [Recovered/Resolved]
  - Malaise [Recovered/Resolved]
  - Pyrexia [Recovered/Resolved]
  - Serum ferritin increased [Recovered/Resolved]
  - Lymphocyte morphology abnormal [Recovered/Resolved]
  - Conjunctivitis [Recovered/Resolved]
  - Ascites [Recovered/Resolved]
  - Leukocytosis [Recovered/Resolved]
  - Oropharyngeal pain [Recovered/Resolved]
  - Strawberry tongue [Recovered/Resolved]
  - Liver function test increased [Recovered/Resolved]
  - Hepatosplenomegaly [Recovered/Resolved]
  - Lymphadenopathy [Recovered/Resolved]
  - Condition aggravated [Recovered/Resolved]
  - Rash scarlatiniform [Recovered/Resolved]
  - Epstein-Barr virus infection [Recovered/Resolved]
  - Hepatitis fulminant [Recovered/Resolved]
  - Scarlet fever [Recovered/Resolved]
  - Erythema infectiosum [Recovered/Resolved]
